FAERS Safety Report 13466558 (Version 3)
Quarter: 2017Q4

REPORT INFORMATION
  Report Type: Report from Study
  Country: CN (occurrence: CN)
  Receive Date: 20170421
  Receipt Date: 20171106
  Transmission Date: 20180320
  Serious: Yes (Death, Hospitalization)
  Sender: FDA-Public Use
  Company Number: PHHY2017CN058448

PATIENT
  Age: 44 Year
  Sex: Male
  Weight: 56 kg

DRUGS (44)
  1. CALCIUM GLUCONATE. [Concomitant]
     Active Substance: CALCIUM GLUCONATE
     Indication: PRODUCT USED FOR UNKNOWN INDICATION
     Dosage: 2 G, QD
     Route: 042
     Dates: start: 20170224, end: 20170224
  2. CARBAZOCHROME SULFONATE DE SODIUM [Concomitant]
     Indication: PROPHYLAXIS
     Dosage: UNK
     Route: 042
     Dates: start: 20170329
  3. CEFODIZIME DISODIUM [Concomitant]
     Active Substance: CEFODIZIME SODIUM
     Dosage: 2 G, BID
     Route: 042
     Dates: start: 20170316, end: 20170330
  4. FOLIC ACID. [Concomitant]
     Active Substance: FOLIC ACID
     Indication: ANAEMIA
     Dosage: 10 MG, TID
     Route: 048
     Dates: start: 20170327
  5. INSULIN [Concomitant]
     Active Substance: INSULIN NOS
     Dosage: 26 U, QD
     Route: 042
     Dates: start: 20170301, end: 20170301
  6. TALCID [Concomitant]
     Active Substance: HYDROTALCITE
     Indication: CHRONIC GASTRITIS
     Dosage: 10000 MG, TID
     Route: 048
     Dates: start: 20170304, end: 20170305
  7. LEVOFLOXACIN. [Concomitant]
     Active Substance: LEVOFLOXACIN
     Indication: PRODUCT USED FOR UNKNOWN INDICATION
     Dosage: 100 ML, QD
     Route: 042
     Dates: start: 20170330, end: 20170330
  8. MYFORTIC [Suspect]
     Active Substance: MYCOPHENOLATE SODIUM
     Indication: IMMUNOSUPPRESSANT DRUG THERAPY
     Dosage: 1620 MG, QD
     Route: 048
     Dates: start: 20170228, end: 20170228
  9. MYFORTIC [Suspect]
     Active Substance: MYCOPHENOLATE SODIUM
     Dosage: 540 MG, QD
     Route: 048
     Dates: start: 20170322, end: 20170322
  10. SIMULECT [Suspect]
     Active Substance: BASILIXIMAB
     Indication: PROPHYLAXIS AGAINST TRANSPLANT REJECTION
  11. TACROLIMUS. [Suspect]
     Active Substance: TACROLIMUS
     Indication: PROPHYLAXIS AGAINST TRANSPLANT REJECTION
     Route: 065
  12. THYMOGLOBULINE [Suspect]
     Active Substance: LAPINE T-LYMPHOCYTE IMMUNE GLOBULIN
     Indication: PROPHYLAXIS AGAINST TRANSPLANT REJECTION
     Dosage: UNK
     Route: 065
     Dates: start: 20170321, end: 20170328
  13. BETALOC [Concomitant]
     Active Substance: METOPROLOL TARTRATE
     Indication: BLOOD PRESSURE INCREASED
     Dosage: 12.5 MG, QD
     Route: 048
     Dates: start: 20170225, end: 20170225
  14. DIAZEPAM. [Concomitant]
     Active Substance: DIAZEPAM
     Indication: SEDATION
     Dosage: 2.5 MG, QD
     Route: 048
     Dates: start: 20170225, end: 20170225
  15. ALPROSTADIL. [Concomitant]
     Active Substance: ALPROSTADIL
     Indication: PRODUCT USED FOR UNKNOWN INDICATION
     Dosage: 10 UG, QD
     Route: 048
     Dates: start: 20170323, end: 20170324
  16. ESOMEPRAZOLE [Concomitant]
     Active Substance: ESOMEPRAZOLE
     Indication: PROPHYLAXIS AGAINST GASTROINTESTINAL ULCER
     Dosage: 40 MG, BID
     Route: 042
     Dates: start: 20170320, end: 20170330
  17. INSULIN [Concomitant]
     Active Substance: INSULIN NOS
     Dosage: 52 U, QD
     Route: 042
     Dates: start: 20170228, end: 20170228
  18. ULINASTATIN [Concomitant]
     Active Substance: ULINASTATIN
     Indication: PRODUCT USED FOR UNKNOWN INDICATION
     Dosage: 10 OT, BID
     Route: 042
     Dates: start: 20170224, end: 20170225
  19. METHYLPREDNISOLONE. [Suspect]
     Active Substance: METHYLPREDNISOLONE
     Indication: PROPHYLAXIS AGAINST TRANSPLANT REJECTION
     Route: 065
  20. MEDROL [Suspect]
     Active Substance: METHYLPREDNISOLONE
     Indication: IMMUNOSUPPRESSANT DRUG THERAPY
     Route: 048
  21. DOMPERIDONE [Concomitant]
     Active Substance: DOMPERIDONE
     Indication: PRODUCT USED FOR UNKNOWN INDICATION
     Dosage: 10 MG, TID
     Route: 048
     Dates: start: 20170313, end: 20170315
  22. CEFODIZIME DISODIUM [Concomitant]
     Active Substance: CEFODIZIME SODIUM
     Indication: INFECTION PROPHYLAXIS
     Dosage: 2 G, BID
     Route: 042
     Dates: start: 20170224, end: 20170225
  23. TRIVIT-B [Concomitant]
     Indication: PRODUCT USED FOR UNKNOWN INDICATION
     Dosage: 1 DF, QD
     Route: 042
     Dates: start: 20170225, end: 20170303
  24. INSULIN [Concomitant]
     Active Substance: INSULIN NOS
     Indication: BLOOD GLUCOSE INCREASED
     Dosage: 80 U, QD
     Route: 042
     Dates: start: 20170225, end: 20170227
  25. OMEPRAZOLE. [Concomitant]
     Active Substance: OMEPRAZOLE
     Indication: PROPHYLAXIS AGAINST GASTROINTESTINAL ULCER
     Dosage: 20 MG, QD
     Route: 048
     Dates: start: 20170307
  26. LANSOPRAZOLE. [Concomitant]
     Active Substance: LANSOPRAZOLE
     Indication: PROPHYLAXIS AGAINST GASTROINTESTINAL ULCER
     Dosage: 30 MG, BID
     Route: 042
     Dates: start: 20170224, end: 20170225
  27. SIMULECT [Suspect]
     Active Substance: BASILIXIMAB
     Indication: RENAL TRANSPLANT
     Route: 065
  28. DOMPERIDONE [Concomitant]
     Active Substance: DOMPERIDONE
     Dosage: 10 MG, TID
     Route: 048
     Dates: start: 20170330, end: 20170330
  29. ATROPINE SULFATE. [Concomitant]
     Active Substance: ATROPINE SULFATE
     Indication: PRODUCT USED FOR UNKNOWN INDICATION
     Dosage: 0.5 MG, QD
     Route: 030
     Dates: start: 20170223, end: 20170223
  30. AMILORIDE HCL [Concomitant]
     Active Substance: AMILORIDE HYDROCHLORIDE
     Indication: PRODUCT USED FOR UNKNOWN INDICATION
     Dosage: 1 DF, QD
     Route: 048
     Dates: start: 20170308, end: 20170308
  31. NIFEDIPINE. [Concomitant]
     Active Substance: NIFEDIPINE
     Indication: BLOOD GLUCOSE INCREASED
     Dosage: 30 MG, QD
     Route: 048
     Dates: start: 20170307, end: 20170308
  32. MYFORTIC [Suspect]
     Active Substance: MYCOPHENOLATE SODIUM
     Dosage: 720 MG, QD
     Route: 048
     Dates: start: 20170320, end: 20170321
  33. SACCHAROMYCES BOULARDII [Concomitant]
     Active Substance: SACCHAROMYCES CEREVISIAE
     Indication: PRODUCT USED FOR UNKNOWN INDICATION
     Dosage: 1.5 G, TID
     Route: 048
     Dates: start: 20170326, end: 20170330
  34. ESTAZOLAM. [Concomitant]
     Active Substance: ESTAZOLAM
     Indication: SLEEP DISORDER
     Dosage: 1 MG, QD
     Route: 042
     Dates: start: 20170227, end: 20170227
  35. GANCICLOVIR. [Concomitant]
     Active Substance: GANCICLOVIR
     Indication: INFECTION PROPHYLAXIS
     Dosage: 250 MG, QD
     Route: 042
     Dates: start: 20170316, end: 20170320
  36. FUROSEMIDE. [Concomitant]
     Active Substance: FUROSEMIDE
     Indication: POLYURIA
     Dosage: 40 MG, QD
     Route: 048
     Dates: start: 20170309, end: 20170309
  37. SODIUM CHLORIDE. [Concomitant]
     Active Substance: SODIUM CHLORIDE
     Indication: PRODUCT USED FOR UNKNOWN INDICATION
     Dosage: 100 ML, QD
     Route: 042
     Dates: start: 20170330, end: 20170330
  38. ACETYLCYSTEINE. [Concomitant]
     Active Substance: ACETYLCYSTEINE
     Indication: HEPATIC FAILURE
     Dosage: 4 G, QD
     Route: 042
     Dates: start: 20170313, end: 20170318
  39. AMBROXOL HYDROCHLORIDE [Concomitant]
     Active Substance: AMBROXOL HYDROCHLORIDE
     Indication: PRODUCT USED FOR UNKNOWN INDICATION
     Dosage: 90 MG, TID
     Route: 042
     Dates: start: 20170330, end: 20170331
  40. ALANYL GLUTAMINE [Concomitant]
     Active Substance: ALANYL GLUTAMINE
     Indication: PRODUCT USED FOR UNKNOWN INDICATION
     Dosage: 10 G, QD
     Route: 042
     Dates: start: 20170225, end: 20170303
  41. MYFORTIC [Suspect]
     Active Substance: MYCOPHENOLATE SODIUM
     Indication: RENAL TRANSPLANT
     Dosage: 1440 MG, QD
     Route: 048
     Dates: start: 20170225, end: 20170227
  42. GANCICLOVIR. [Concomitant]
     Active Substance: GANCICLOVIR
     Dosage: 0.5 G, QD
     Route: 042
     Dates: start: 20170320, end: 20170326
  43. FEBUXOSTAT. [Concomitant]
     Active Substance: FEBUXOSTAT
     Indication: GOUT
     Dosage: 40 MG, QD
     Route: 048
     Dates: start: 20170313, end: 20170330
  44. LEUCOGEN [Concomitant]
     Active Substance: LEUCOGEN
     Indication: PLATELET DISORDER
     Dosage: 40 MG, TID
     Route: 048
     Dates: start: 20170326, end: 20170330

REACTIONS (16)
  - Rales [Fatal]
  - Kidney transplant rejection [Not Recovered/Not Resolved]
  - White blood cell count decreased [Unknown]
  - Atelectasis [Fatal]
  - Renal failure [Not Recovered/Not Resolved]
  - Respiratory tract infection fungal [Not Recovered/Not Resolved]
  - Pleural effusion [Fatal]
  - Blood creatinine increased [Unknown]
  - Haemoptysis [Not Recovered/Not Resolved]
  - Cough [Fatal]
  - Lung infection [Fatal]
  - Chest discomfort [Fatal]
  - Complications of transplanted kidney [Not Recovered/Not Resolved]
  - Platelet count decreased [Unknown]
  - Pyrexia [Not Recovered/Not Resolved]
  - Renal atrophy [Not Recovered/Not Resolved]

NARRATIVE: CASE EVENT DATE: 20170311
